FAERS Safety Report 23623839 (Version 6)
Quarter: 2024Q2

REPORT INFORMATION
  Report Type: Report from Study
  Country: CA (occurrence: CA)
  Receive Date: 20240312
  Receipt Date: 20240614
  Transmission Date: 20240716
  Serious: Yes (Hospitalization, Other)
  Sender: FDA-Public Use
  Company Number: CA-TAKEDA-2024TUS021003

PATIENT
  Age: 87 Year
  Sex: Male

DRUGS (4)
  1. VEDOLIZUMAB [Suspect]
     Active Substance: VEDOLIZUMAB
     Indication: Colitis ulcerative
     Dosage: 300 MILLIGRAM
     Route: 042
     Dates: start: 20231111
  2. VEDOLIZUMAB [Suspect]
     Active Substance: VEDOLIZUMAB
     Indication: Colitis ulcerative
     Dosage: 108 MILLIGRAM, Q2WEEKS
     Route: 058
     Dates: start: 20240105
  3. PREDNISONE [Concomitant]
     Active Substance: PREDNISONE
     Dosage: UNK
     Dates: start: 20231106
  4. Salofalk [Concomitant]
     Dosage: UNK
     Route: 054
     Dates: start: 20101001

REACTIONS (5)
  - Colitis ulcerative [Unknown]
  - Cardiac failure [Unknown]
  - Anal abscess [Unknown]
  - Proctitis [Unknown]
  - Anal fistula [Unknown]

NARRATIVE: CASE EVENT DATE: 20240403
